FAERS Safety Report 4776243-4 (Version None)
Quarter: 2005Q3

REPORT INFORMATION
  Report Type: 
  Country: None (occurrence: None)
  Receive Date: 20050922
  Receipt Date: 20050822
  Transmission Date: 20060218
  Serious: Yes (Other)
  Sender: FDA-Public Use
  Company Number: PHBS2005CZ12482

PATIENT
  Age: 42 Year
  Sex: Male

DRUGS (4)
  1. ZOMETA [Suspect]
     Indication: MULTIPLE MYELOMA
     Dosage: 4 MG EVERY 3 - 4 WEEKS
     Route: 042
     Dates: start: 20050101
  2. CALTRATE [Concomitant]
     Route: 065
  3. MEGACE [Concomitant]
     Route: 065
  4. ANALGESICS [Concomitant]
     Route: 065

REACTIONS (9)
  - ASEPTIC NECROSIS BONE [None]
  - BONE DISORDER [None]
  - BONE PAIN [None]
  - IMPAIRED HEALING [None]
  - PERIOSTITIS HYPERTROPHIC [None]
  - PRIMARY SEQUESTRUM [None]
  - STOMATITIS NECROTISING [None]
  - SURGERY [None]
  - TOOTH EXTRACTION [None]
